FAERS Safety Report 16510977 (Version 1)
Quarter: 2019Q3

REPORT INFORMATION
  Report Type: Report from Study
  Country: US (occurrence: US)
  Receive Date: 20190702
  Receipt Date: 20190702
  Transmission Date: 20191004
  Serious: Yes (Other)
  Sender: FDA-Public Use
  Company Number: PHEH2019US026826

PATIENT
  Sex: Female

DRUGS (1)
  1. GLEEVEC [Suspect]
     Active Substance: IMATINIB MESYLATE
     Indication: PRODUCT USED FOR UNKNOWN INDICATION
     Route: 065

REACTIONS (4)
  - Abdominal neoplasm [Recovering/Resolving]
  - Neoplasm malignant [Recovering/Resolving]
  - Blood pressure increased [Recovering/Resolving]
  - Lung carcinoma cell type unspecified stage III [Recovering/Resolving]
